FAERS Safety Report 7503188-9 (Version None)
Quarter: 2011Q2

REPORT INFORMATION
  Report Type: 
  Country: None (occurrence: None)
  Receive Date: 20110525
  Receipt Date: 20101123
  Transmission Date: 20111010
  Serious: No
  Sender: FDA-Public Use
  Company Number: US-NOVEN-ALL1-2010-05573

PATIENT
  Sex: Female
  Weight: 38.549 kg

DRUGS (6)
  1. ZYRTEC [Concomitant]
     Dosage: 10 MG, 1X/DAY:QD
     Route: 048
  2. VERAMYST [Concomitant]
     Dosage: 27.5 UG, 2X/DAY:BID
     Route: 055
  3. SINGULAIR [Concomitant]
     Dosage: 5 MG, 1X/DAY:QD
     Route: 048
  4. DAYTRANA [Suspect]
     Dosage: 10 MG, 1X/DAY:QD
     Route: 062
     Dates: start: 20101018
  5. FLOVENT [Concomitant]
     Dosage: 110 UG, 2X/DAY:BID (2 PUFFS TWICE DAILY)
     Route: 055
  6. PROVENTIL                          /00139501/ [Concomitant]
     Dosage: 120 UG, AS REQ'D
     Route: 055

REACTIONS (3)
  - PRODUCT QUALITY ISSUE [None]
  - WRONG TECHNIQUE IN DRUG USAGE PROCESS [None]
  - NO ADVERSE EVENT [None]
